FAERS Safety Report 7797396-X (Version None)
Quarter: 2011Q4

REPORT INFORMATION
  Report Type: 
  Country: None (occurrence: None)
  Receive Date: 20111005
  Receipt Date: 20110928
  Transmission Date: 20120403
  Serious: Yes (Life-Threatening, Hospitalization, Other)
  Sender: FDA-Public Use
  Company Number: US-PFIZER INC-2011232256

PATIENT
  Age: 28 Year
  Sex: Female

DRUGS (1)
  1. SULFASALAZINE [Suspect]

REACTIONS (3)
  - DRUG RASH WITH EOSINOPHILIA AND SYSTEMIC SYMPTOMS [None]
  - EOSINOPHILIC MYOCARDITIS [None]
  - CARDIAC ARREST [None]
